FAERS Safety Report 9657030 (Version 1)
Quarter: 2013Q4

REPORT INFORMATION
  Report Type: Spontaneous
  Country: US (occurrence: US)
  Receive Date: 20131030
  Receipt Date: 20131030
  Transmission Date: 20140711
  Serious: Yes (Other)
  Sender: FDA-Public Use
  Company Number: US-PFIZER INC-2013307234

PATIENT
  Sex: Female

DRUGS (2)
  1. SERTRALINE HCL [Suspect]
     Indication: ANXIETY
     Dosage: 25 MG, UNK
     Dates: end: 201310
  2. SERTRALINE HCL [Suspect]
     Indication: DEPRESSION

REACTIONS (5)
  - Asthma [Unknown]
  - Headache [Unknown]
  - Agitation [Unknown]
  - Crying [Unknown]
  - Insomnia [Unknown]
